FAERS Safety Report 14417716 (Version 3)
Quarter: 2018Q2

REPORT INFORMATION
  Report Type: Spontaneous
  Country: DE (occurrence: DE)
  Receive Date: 20180122
  Receipt Date: 20180410
  Transmission Date: 20180711
  Serious: Yes (Hospitalization, Other)
  Sender: FDA-Public Use
  Company Number: DE-GLAXOSMITHKLINE-DE2018GSK010252

PATIENT
  Age: 47 Year
  Sex: Male

DRUGS (3)
  1. ORFIRIL LONG [Suspect]
     Active Substance: VALPROIC ACID
     Indication: SEIZURE
     Dosage: 1000 MG, QD
     Route: 048
     Dates: end: 201712
  2. LUMINAL [Suspect]
     Active Substance: PHENOBARBITAL SODIUM
     Indication: SEIZURE
     Dosage: 100 MG, U
     Route: 048
     Dates: end: 201712
  3. LAMICTAL [Suspect]
     Active Substance: LAMOTRIGINE
     Indication: SEIZURE
     Dosage: 200 MG, QD
     Route: 048
     Dates: end: 201712

REACTIONS (6)
  - Feeling drunk [Unknown]
  - Seizure [Unknown]
  - Vision blurred [Recovering/Resolving]
  - Withdrawal syndrome [Recovered/Resolved]
  - Therapy cessation [Unknown]
  - Dizziness [Recovering/Resolving]

NARRATIVE: CASE EVENT DATE: 201712
